FAERS Safety Report 4876382-3 (Version None)
Quarter: 2006Q1

REPORT INFORMATION
  Report Type: 
  Country: None (occurrence: None)
  Receive Date: 20060106
  Receipt Date: 20051222
  Transmission Date: 20060701
  Serious: Yes (Other)
  Sender: FDA-Public Use
  Company Number: URSO-2005-061

PATIENT
  Age: 62 Year
  Sex: Female

DRUGS (3)
  1. URSODESOXYCHOLIC ACID         (URSO) [Suspect]
     Dosage: 300 MG, PO
     Route: 048
     Dates: start: 20050930, end: 20051205
  2. PRAVASTATIN SODIUM [Suspect]
     Indication: HYPERLIPIDAEMIA
     Dates: start: 20050916
  3. GLYCYRON [Concomitant]

REACTIONS (1)
  - IRON DEFICIENCY ANAEMIA [None]
